FAERS Safety Report 5826311-0 (Version None)
Quarter: 2008Q3

REPORT INFORMATION
  Report Type: 
  Country: None (occurrence: None)
  Receive Date: 20080723
  Receipt Date: 20080708
  Transmission Date: 20090109
  Serious: Yes (Hospitalization)
  Sender: FDA-Public Use
  Company Number: 08P-062-0457475-00

PATIENT
  Age: 10 Month
  Sex: Female
  Weight: 7.1 kg

DRUGS (2)
  1. SYNAGIS [Suspect]
     Indication: PROPHYLAXIS
     Dosage: 1.1 ML
     Route: 058
     Dates: start: 20080228, end: 20080228
  2. SYNAGIS [Suspect]
     Indication: RESPIRATORY SYNCYTIAL VIRUS INFECTION
     Dosage: 1.1 ML
     Route: 058
     Dates: start: 20080228, end: 20080228

REACTIONS (5)
  - ACINETOBACTER INFECTION [None]
  - BRONCHIOLITIS [None]
  - HAEMOPHILUS INFECTION [None]
  - METHICILLIN-RESISTANT STAPHYLOCOCCAL AUREUS TEST POSITIVE [None]
  - RESPIRATORY TRACT INFECTION [None]
